FAERS Safety Report 20746862 (Version 2)
Quarter: 2022Q2

REPORT INFORMATION
  Report Type: Spontaneous
  Country: ES (occurrence: ES)
  Receive Date: 20220425
  Receipt Date: 20220606
  Transmission Date: 20220721
  Serious: Yes (Hospitalization, Other)
  Sender: FDA-Public Use
  Company Number: None

PATIENT
  Age: 78 Year
  Sex: Male

DRUGS (28)
  1. VANCOMYCIN HYDROCHLORIDE [Suspect]
     Active Substance: VANCOMYCIN HYDROCHLORIDE
     Indication: Clostridium difficile colitis
     Dosage: 125 MG, 4X/DAY
     Route: 048
     Dates: start: 20211028, end: 20211108
  2. VANCOMYCIN HYDROCHLORIDE [Suspect]
     Active Substance: VANCOMYCIN HYDROCHLORIDE
     Indication: Urinary tract infection
  3. VANCOMYCIN HYDROCHLORIDE [Suspect]
     Active Substance: VANCOMYCIN HYDROCHLORIDE
     Indication: Pneumonia klebsiella
  4. SULPIRIDE [Suspect]
     Active Substance: SULPIRIDE
     Dosage: 100 MG, AS NEEDED
     Route: 065
     Dates: start: 20211026, end: 20211027
  5. LEVOFLOXACIN [Suspect]
     Active Substance: LEVOFLOXACIN
     Indication: COVID-19 pneumonia
     Dosage: 500 MG 1X/DAY
     Route: 065
     Dates: start: 20211023, end: 20211029
  6. TRAZODONE HCL [Suspect]
     Active Substance: TRAZODONE HYDROCHLORIDE
     Dosage: 50 MG, 1X/DAY
     Route: 048
     Dates: start: 20211105, end: 20211119
  7. CLOPIDOGREL [Concomitant]
     Active Substance: CLOPIDOGREL BISULFATE
     Dosage: 75 MG, DAILY AT NOON
     Dates: start: 20130613
  8. ENALAPRIL [Concomitant]
     Active Substance: ENALAPRIL
     Dosage: 20 MG, DAILY AT MORNING
     Dates: start: 20170404
  9. FERBISOL [Concomitant]
     Dosage: 100 MG, DAILY AT MORNING
     Dates: start: 20190625, end: 20211119
  10. PURE BAKING SODA [Concomitant]
     Active Substance: SODIUM BICARBONATE
     Dosage: TWICE A DAY
     Dates: start: 20210806
  11. LEVEMIR [Concomitant]
     Active Substance: INSULIN DETEMIR
     Dosage: 100U/ML 5 FEATHERS : 0-0-13
     Dates: start: 20141024
  12. BUSCAPINA [Concomitant]
     Dosage: UNK, AS NEEDED
     Dates: start: 20210924, end: 20211220
  13. ROCALTROL [Concomitant]
     Active Substance: CALCITRIOL
     Dosage: 0.25 UG, DAILY
     Dates: start: 20210924, end: 20211207
  14. CALCIUM POLYSTYRENE SULFONATE [Concomitant]
     Active Substance: CALCIUM POLYSTYRENE SULFONATE
     Dosage: TWICE A DAY
     Dates: start: 20210917, end: 20211207
  15. DEXAMETHASONE [Concomitant]
     Active Substance: DEXAMETHASONE
     Dosage: ONCE A DAY
     Dates: start: 20211026, end: 20211112
  16. MEGESTROL [Concomitant]
     Active Substance: MEGESTROL
     Dosage: TWICE A DAY
     Dates: start: 20211102, end: 20211110
  17. SALVACOLINA [LOPERAMIDE HYDROCHLORIDE] [Concomitant]
     Dosage: UNK
     Dates: start: 20211013, end: 20211119
  18. SYMBICORT [Concomitant]
     Active Substance: BUDESONIDE\FORMOTEROL FUMARATE DIHYDRATE
     Dosage: 2-0-2
     Dates: start: 20211119
  19. SODIUM PHOSPHATE, DIBASIC, ANHYDROUS [Concomitant]
     Active Substance: SODIUM PHOSPHATE, DIBASIC, ANHYDROUS
     Dosage: 3.56 G, 0-1-0
     Dates: start: 20211207
  20. OMEPRAZOLE [Concomitant]
     Active Substance: OMEPRAZOLE
     Dosage: 20 MG, 1-0-0
     Dates: start: 20190109
  21. ATORVASTATIN [Concomitant]
     Active Substance: ATORVASTATIN
     Dosage: 10 MG, 0-0-1
     Dates: start: 20150209
  22. SODIUM BICARBONATE [Concomitant]
     Active Substance: SODIUM BICARBONATE
     Dosage: 1 G, 2-2-2
     Dates: start: 20210806
  23. RACECADOTRIL [Concomitant]
     Active Substance: RACECADOTRIL
     Dosage: 100 MG, 1-1-1 IF DIARRHEA
     Dates: start: 20211115
  24. ATROVENT [Concomitant]
     Active Substance: IPRATROPIUM BROMIDE
     Dosage: 20 UG, 1-1-1-1 IF DYSPNEA
     Dates: start: 20211119
  25. MAGNESIOBOI [Concomitant]
     Dosage: 48.62 MG, 1-1-0
     Dates: start: 20211207
  26. ESCITALOPRAM [Concomitant]
     Active Substance: ESCITALOPRAM OXALATE
     Dosage: 10 MG, 1-0-0
     Dates: start: 20211119
  27. INSULIN ASPART [Concomitant]
     Active Substance: INSULIN ASPART
     Dosage: 30 FLEXPEN 100 IU/ML
     Dates: start: 20211220
  28. FEBUXOSTAT [Concomitant]
     Active Substance: FEBUXOSTAT
     Dosage: 80MG 3 EVERY 7 DAYS
     Dates: start: 20171024

REACTIONS (1)
  - Mixed liver injury [Recovered/Resolved]

NARRATIVE: CASE EVENT DATE: 20211108
